FAERS Safety Report 9236360 (Version 1)
Quarter: 2013Q2

REPORT INFORMATION
  Report Type: Spontaneous
  Country: US (occurrence: US)
  Receive Date: 20130417
  Receipt Date: 20130417
  Transmission Date: 20140414
  Serious: No
  Sender: FDA-Public Use
  Company Number: US-BAUSCH-BL-2013-000204

PATIENT
  Age: 70 Year
  Sex: Female

DRUGS (5)
  1. DORZOLAMIDE HYDROCHLORIDE OPHTHALMIC SOLUTION 2% [Suspect]
     Indication: INTRAOCULAR PRESSURE INCREASED
     Dosage: 1 DROP IN THE LEFT EYE, TWO TIMES PER DAY
     Route: 047
     Dates: start: 2011
  2. ROSUVASTATIN CALCIUM [Concomitant]
  3. INSULIN ASPART [Concomitant]
  4. INSULIN DETEMIR [Concomitant]
  5. ACETYLSALICYLIC ACID [Concomitant]

REACTIONS (1)
  - Vision blurred [Not Recovered/Not Resolved]
